FAERS Safety Report 7003484-8 (Version None)
Quarter: 2010Q3

REPORT INFORMATION
  Report Type: 
  Country: None (occurrence: None)
  Receive Date: 20100916
  Receipt Date: 20100910
  Transmission Date: 20110219
  Serious: Yes (Hospitalization)
  Sender: FDA-Public Use
  Company Number: CAP10000185

PATIENT
  Age: 82 Year
  Sex: Female

DRUGS (4)
  1. ACTONEL [Suspect]
     Indication: OSTEOPOROSIS
     Dosage: 35 MG ONCE WEEKLY, ORAL
     Route: 048
     Dates: end: 20100301
  2. DOMPERIDONE (DOMPERIDONE) [Concomitant]
  3. OMEPRAZOLE [Concomitant]
  4. OMNARIS (CICLESONIDE) [Concomitant]

REACTIONS (2)
  - COLON CANCER [None]
  - PAIN IN EXTREMITY [None]
